FAERS Safety Report 10445340 (Version 2)
Quarter: 2018Q1

REPORT INFORMATION
  Report Type: Report from Study
  Country: US (occurrence: US)
  Receive Date: 20140910
  Receipt Date: 20180125
  Transmission Date: 20180508
  Serious: Yes (Hospitalization)
  Sender: FDA-Public Use
  Company Number: US-JNJFOC-20140906130

PATIENT
  Age: 51 Year
  Sex: Male

DRUGS (1)
  1. INVEGA SUSTENNA [Suspect]
     Active Substance: PALIPERIDONE PALMITATE
     Indication: PRODUCT USED FOR UNKNOWN INDICATION
     Route: 030

REACTIONS (5)
  - Adverse event [Not Recovered/Not Resolved]
  - Malaise [Not Recovered/Not Resolved]
  - Hospitalisation [Unknown]
  - Aphasia [Not Recovered/Not Resolved]
  - Drug dose omission [Not Recovered/Not Resolved]

NARRATIVE: CASE EVENT DATE: 20140903
